FAERS Safety Report 6546317-6 (Version None)
Quarter: 2010Q1

REPORT INFORMATION
  Report Type: 
  Country: None (occurrence: None)
  Receive Date: 20100122
  Receipt Date: 20100118
  Transmission Date: 20100710
  Serious: Yes (Life-Threatening)
  Sender: FDA-Public Use
  Company Number: FR-ROCHE-679902

PATIENT
  Sex: Female

DRUGS (11)
  1. ROCEPHIN [Suspect]
     Indication: URINARY TRACT INFECTION
     Dosage: FORM: INJECTION
     Route: 042
     Dates: start: 20090514, end: 20090518
  2. ROCEPHIN [Suspect]
     Route: 042
     Dates: start: 20090527, end: 20090527
  3. HEMIGOXINE NATIVELLE [Suspect]
     Indication: ATRIAL FIBRILLATION
     Route: 048
     Dates: start: 20090514
  4. CLONIDINE HCL [Concomitant]
  5. RAMIPRIL [Concomitant]
     Dosage: DRUG NAME: RAMIPRIL 5
  6. FUROSEMIDE [Concomitant]
  7. DIALGIREX [Concomitant]
     Dosage: DRUG NAME RPEORTED: DI-ALGERIX
  8. TANAKAN [Concomitant]
  9. LEXOMIL [Concomitant]
  10. SPIRIVA [Concomitant]
  11. CLAMOXYL [Concomitant]

REACTIONS (1)
  - CARDIO-RESPIRATORY ARREST [None]
